FAERS Safety Report 5113369-X (Version None)
Quarter: 2006Q3

REPORT INFORMATION
  Report Type: 
  Country: None (occurrence: None)
  Receive Date: 20060920
  Receipt Date: 20060905
  Transmission Date: 20061208
  Serious: Yes (Death)
  Sender: FDA-Public Use
  Company Number: 2006S1008489

PATIENT
  Age: 56 Year
  Sex: Male

DRUGS (7)
  1. CLOZAPINE [Suspect]
     Indication: SCHIZOPHRENIA
     Dosage: SEE IMAGE
     Route: 048
     Dates: end: 20060101
  2. CLOZAPINE [Suspect]
     Indication: SCHIZOPHRENIA
     Dosage: SEE IMAGE
     Route: 048
     Dates: end: 20060101
  3. VALPROATE SODIUM [Concomitant]
  4. LORAZEPAM [Concomitant]
  5. BENZTROPINE MESYLATE [Concomitant]
  6. RIVASTIGMINE [Concomitant]
  7. MIRTAZAPINE [Concomitant]

REACTIONS (1)
  - GRANULOCYTOPENIA [None]
